FAERS Safety Report 14481557 (Version 1)
Quarter: 2018Q1

REPORT INFORMATION
  Report Type: Spontaneous
  Country: US (occurrence: US)
  Receive Date: 20180202
  Receipt Date: 20180202
  Transmission Date: 20180509
  Serious: No
  Sender: FDA-Public Use
  Company Number: US-SHIRE-US201803753

PATIENT
  Age: 81 Year
  Sex: Female
  Weight: 64.85 kg

DRUGS (1)
  1. CUVITRU [Suspect]
     Active Substance: HUMAN IMMUNOGLOBULIN G
     Indication: PRODUCT USED FOR UNKNOWN INDICATION
     Dosage: 35 G, 1X/2WKS
     Route: 058
     Dates: start: 20180123

REACTIONS (1)
  - Tenderness [Recovering/Resolving]

NARRATIVE: CASE EVENT DATE: 20180124
